FAERS Safety Report 18441758 (Version 1)
Quarter: 2020Q4

REPORT INFORMATION
  Report Type: Spontaneous
  Country: CH (occurrence: CH)
  Receive Date: 20201029
  Receipt Date: 20201029
  Transmission Date: 20210114
  Serious: Yes (Other)
  Sender: FDA-Public Use
  Company Number: CH-BAXTER-2020BAX021515

PATIENT
  Age: 73 Year
  Sex: Female

DRUGS (10)
  1. HOLOXAN 2 G [Suspect]
     Active Substance: IFOSFAMIDE
     Dosage: DOSE RE-INTRODUCED
     Route: 041
  2. CARBOPLATIN. [Suspect]
     Active Substance: CARBOPLATIN
     Dosage: RICE PROTOCOL, SECOND CYCLE, ADDITIONAL INFO: ROUTE: 041
     Route: 041
     Dates: start: 20200918, end: 20200918
  3. ETOPOSIDE. [Suspect]
     Active Substance: ETOPOSIDE
     Dosage: RICE PROTOCOL, SECOND CYCLE, ADDITIONAL INFO: ROUTE: 041
     Route: 041
     Dates: start: 20200917, end: 20200919
  4. HOLOXAN 2 G [Suspect]
     Active Substance: IFOSFAMIDE
     Dosage: RICE PROTOCOL, SECOND CYCLE, 70% OF PRESCRIBED DOSAGE (8000MG) IN TOTAL, ONLY 70% OF THE IFOSFAMIDE
     Route: 041
     Dates: start: 20200918, end: 20200918
  5. RITUXIMAB. [Suspect]
     Active Substance: RITUXIMAB
     Indication: DIFFUSE LARGE B-CELL LYMPHOMA RECURRENT
     Dosage: RICE PROTOCOL, FIRST CYCLE, ADDITIONAL INFO: ROUTE: 041
     Route: 041
     Dates: start: 20200827, end: 20200827
  6. CARBOPLATIN. [Suspect]
     Active Substance: CARBOPLATIN
     Indication: DIFFUSE LARGE B-CELL LYMPHOMA RECURRENT
     Dosage: RICE PROTOCOL, FIRST CYCLE, ADDITIONAL INFO: ROUTE: 041
     Route: 041
     Dates: start: 20200829, end: 20200829
  7. HOLOXAN 2 G [Suspect]
     Active Substance: IFOSFAMIDE
     Indication: DIFFUSE LARGE B-CELL LYMPHOMA RECURRENT
     Dosage: RICE PROTOCOL, FIRST CYCLE
     Route: 041
     Dates: start: 20200827, end: 20200830
  8. RITUXIMAB. [Suspect]
     Active Substance: RITUXIMAB
     Dosage: RICE PROTOCOL, SECOND CYCLE, ADDITIONAL INFO: ROUTE: 041
     Route: 041
     Dates: start: 20200917, end: 20200917
  9. UROMITEXAN 400 ML, LOSUNG ZUR INTRAVENOSEN ANWENDUNG [Suspect]
     Active Substance: MESNA
     Indication: PROPHYLAXIS
     Dosage: PRESCRIBED DOSAGE: 8100 MG IN TOTAL, ADDITIONAL INFO: ROUTE: 041
     Route: 041
     Dates: start: 20200918, end: 20200918
  10. ETOPOSIDE. [Suspect]
     Active Substance: ETOPOSIDE
     Indication: DIFFUSE LARGE B-CELL LYMPHOMA RECURRENT
     Dosage: RICE PROTOCOL, FIRST CYCLE, ADDITIONAL INFO: ROUTE: 041
     Route: 041
     Dates: start: 20200828, end: 20200830

REACTIONS (3)
  - Hypophosphataemia [Recovered/Resolved]
  - Hypokalaemia [Recovered/Resolved]
  - Incorrect product administration duration [Unknown]

NARRATIVE: CASE EVENT DATE: 20200918
